FAERS Safety Report 9631695 (Version 2)
Quarter: 2013Q4

REPORT INFORMATION
  Report Type: Spontaneous
  Country: BR (occurrence: BR)
  Receive Date: 20131018
  Receipt Date: 20131030
  Transmission Date: 20140711
  Serious: Yes (Hospitalization)
  Sender: FDA-Public Use
  Company Number: BR-ELI_LILLY_AND_COMPANY-BR201310002486

PATIENT
  Age: 14 Year
  Sex: Female
  Weight: 45 kg

DRUGS (4)
  1. HUMULIN N [Suspect]
     Indication: DIABETES MELLITUS INADEQUATE CONTROL
     Dosage: 32 IU, EACH MORNING
     Route: 058
     Dates: start: 20111009, end: 201309
  2. HUMULIN N [Suspect]
     Dosage: 12 IU, EACH MORNING
     Route: 058
     Dates: start: 20111009, end: 201309
  3. HUMULIN R [Suspect]
     Indication: DIABETES MELLITUS INADEQUATE CONTROL
     Dosage: UNK, PRN
     Route: 058
     Dates: start: 20111009, end: 201309
  4. HUMALOG [Suspect]
     Indication: TYPE 1 DIABETES MELLITUS
     Dosage: 6 IU, PRN
     Route: 058
     Dates: start: 201309

REACTIONS (5)
  - Hyperglycaemia [Recovered/Resolved]
  - Sinusitis [Recovered/Resolved]
  - Urine analysis abnormal [Unknown]
  - Drug ineffective [Unknown]
  - Irritability [Unknown]
